FAERS Safety Report 8170189-X (Version None)
Quarter: 2012Q1

REPORT INFORMATION
  Report Type: 
  Country: None (occurrence: None)
  Receive Date: 20120228
  Receipt Date: 20120222
  Transmission Date: 20120608
  Serious: Yes (Hospitalization)
  Sender: FDA-Public Use
  Company Number: PHEH1997US00627

PATIENT
  Sex: Female
  Weight: 77 kg

DRUGS (10)
  1. CATAPRES [Concomitant]
  2. NEORAL [Suspect]
     Route: 048
     Dates: start: 19950212
  3. ZANTAC [Concomitant]
  4. FLAGYL [Concomitant]
  5. AZATHIOPRINE [Concomitant]
  6. ACYCLOVIR [Concomitant]
  7. PREDNISONE TAB [Concomitant]
  8. PAROXETINE [Concomitant]
  9. INDERAL [Concomitant]
  10. SERAX [Concomitant]

REACTIONS (1)
  - CHOLANGITIS [None]
